FAERS Safety Report 4881412-9 (Version None)
Quarter: 2005Q4

REPORT INFORMATION
  Report Type: 
  Country: None (occurrence: None)
  Receive Date: 20051212
  Receipt Date: 20050906
  Transmission Date: 20060501
  Serious: No
  Sender: FDA-Public Use
  Company Number: 2005-01894

PATIENT
  Age: 73 Year
  Sex: Female
  Weight: 59 kg

DRUGS (3)
  1. VELCADE [Suspect]
     Indication: MULTIPLE MYELOMA
     Dosage: 2.00 MG, IV BOLUS
     Route: 040
     Dates: start: 20050614
  2. ZOFRAN [Concomitant]
  3. DEXAMETHASONE TAB [Concomitant]

REACTIONS (3)
  - EYE DISCHARGE [None]
  - EYELID OEDEMA [None]
  - HORDEOLUM [None]
